FAERS Safety Report 6362889-9 (Version None)
Quarter: 2009Q3

REPORT INFORMATION
  Report Type: 
  Country: None (occurrence: None)
  Receive Date: 20090919
  Receipt Date: 20090612
  Transmission Date: 20100115
  Serious: No
  Sender: FDA-Public Use
  Company Number: US-ABBOTT-09P-163-0579621-00

PATIENT
  Sex: Male
  Weight: 86.26 kg

DRUGS (4)
  1. HUMIRA [Suspect]
     Indication: CROHN'S DISEASE
     Route: 058
     Dates: start: 20090424, end: 20090424
  2. HUMIRA [Suspect]
     Route: 058
     Dates: start: 20090508, end: 20090508
  3. HUMIRA [Suspect]
     Route: 058
     Dates: start: 20090522
  4. LORTAB [Concomitant]
     Indication: PAIN

REACTIONS (1)
  - INCORRECT DRUG DOSAGE FORM ADMINISTERED [None]
